FAERS Safety Report 6903039-7 (Version None)
Quarter: 2010Q3

REPORT INFORMATION
  Report Type: 
  Country: None (occurrence: None)
  Receive Date: 20100803
  Receipt Date: 20080709
  Transmission Date: 20110219
  Serious: No
  Sender: FDA-Public Use
  Company Number: US-PFIZER INC-2008057904

PATIENT
  Sex: Female
  Weight: 83 kg

DRUGS (2)
  1. LYRICA [Suspect]
     Indication: FIBROMYALGIA
     Route: 048
     Dates: end: 20080701
  2. DRUG, UNSPECIFIED [Concomitant]

REACTIONS (2)
  - ANAEMIA [None]
  - TINNITUS [None]
